FAERS Safety Report 10744163 (Version 1)
Quarter: 2015Q1

REPORT INFORMATION
  Report Type: Spontaneous
  Country: US (occurrence: None)
  Receive Date: 20150126
  Receipt Date: 20150126
  Transmission Date: 20150721
  Serious: Yes (Other)
  Sender: FDA-Public Use
  Company Number: AMAG201500018

PATIENT
  Sex: Male

DRUGS (2)
  1. MORPHINE (MORPHINE HYDROCHLORIDE) [Concomitant]
     Active Substance: MORPHINE
  2. FERAHEME [Suspect]
     Active Substance: FERUMOXYTOL NON-STOICHIOMETRIC MAGNETITE
     Dosage: SINGLE, IV PUSH
     Route: 042
     Dates: start: 20150115, end: 20150115

REACTIONS (3)
  - Throat tightness [None]
  - Blood pressure decreased [None]
  - Unresponsive to stimuli [None]

NARRATIVE: CASE EVENT DATE: 20150115
